FAERS Safety Report 21776196 (Version 4)
Quarter: 2023Q1

REPORT INFORMATION
  Report Type: Report from Study
  Country: US (occurrence: US)
  Receive Date: 20221226
  Receipt Date: 20230104
  Transmission Date: 20230418
  Serious: No
  Sender: FDA-Public Use
  Company Number: US-002147023-NVSC2022US294984

PATIENT
  Sex: Female

DRUGS (2)
  1. KESIMPTA [Suspect]
     Active Substance: OFATUMUMAB
     Indication: Product used for unknown indication
     Dosage: UNK (20 MG/ 0.4 ML)
     Route: 065
     Dates: start: 20221219
  2. ROSUVASTATIN [Concomitant]
     Active Substance: ROSUVASTATIN
     Indication: Blood cholesterol abnormal
     Dosage: UNK
     Route: 065

REACTIONS (6)
  - Muscle spasms [Unknown]
  - Influenza like illness [Unknown]
  - Arthralgia [Unknown]
  - Myalgia [Unknown]
  - Injection site paraesthesia [Unknown]
  - COVID-19 [Unknown]
